FAERS Safety Report 7864852-5 (Version None)
Quarter: 2011Q4

REPORT INFORMATION
  Report Type: 
  Country: None (occurrence: None)
  Receive Date: 20111028
  Receipt Date: 20100903
  Transmission Date: 20120403
  Serious: No
  Sender: FDA-Public Use
  Company Number: US-GLAXOSMITHKLINE-A0879571A

PATIENT
  Age: 84 Year
  Sex: Female

DRUGS (9)
  1. MONOPRIL [Concomitant]
  2. CALCIUM CARBONATE [Concomitant]
  3. LEVAQUIN [Concomitant]
  4. CO Q 10 [Concomitant]
  5. PLAVIX [Concomitant]
  6. ASPIRIN [Concomitant]
  7. ADVAIR DISKUS 100/50 [Suspect]
     Indication: BRONCHITIS
     Dosage: 1PUFF TWICE PER DAY
     Route: 055
     Dates: start: 20100831, end: 20100902
  8. LIPITOR [Concomitant]
  9. VITAMIN D [Concomitant]

REACTIONS (7)
  - DISCOMFORT [None]
  - COUGH [None]
  - CONDITION AGGRAVATED [None]
  - THROAT IRRITATION [None]
  - EAR DISCOMFORT [None]
  - TYMPANIC MEMBRANE PERFORATION [None]
  - SPUTUM DISCOLOURED [None]
